FAERS Safety Report 5974263-5 (Version None)
Quarter: 2008Q4

REPORT INFORMATION
  Report Type: 
  Country: None (occurrence: None)
  Receive Date: 20081201
  Receipt Date: 20081127
  Transmission Date: 20090506
  Serious: Yes (Other)
  Sender: FDA-Public Use
  Company Number: GB-PFIZER INC-2008100280

PATIENT
  Age: 26 Year
  Sex: Female

DRUGS (5)
  1. CHAMPIX [Suspect]
     Indication: SMOKING CESSATION THERAPY
     Route: 048
     Dates: start: 20081005, end: 20081110
  2. BRICANYL [Concomitant]
     Route: 055
  3. CERAZETTE [Concomitant]
  4. IRON [Concomitant]
  5. MULTI-VITAMINS [Concomitant]

REACTIONS (3)
  - DEPRESSED MOOD [None]
  - INCORRECT DOSE ADMINISTERED [None]
  - TEARFULNESS [None]
